FAERS Safety Report 22834958 (Version 7)
Quarter: 2024Q2

REPORT INFORMATION
  Report Type: Report from Study
  Country: US (occurrence: US)
  Receive Date: 20230818
  Receipt Date: 20240614
  Transmission Date: 20240716
  Serious: Yes (Hospitalization, Other)
  Sender: FDA-Public Use
  Company Number: US-ACADIA PHARMACEUTICALS INC.-ACA-2023-TRF-003173

PATIENT
  Sex: Female

DRUGS (19)
  1. DAYBUE [Suspect]
     Active Substance: TROFINETIDE
     Indication: Rett syndrome
     Dosage: 40 MILLILITER, BID VIA NG TUBE
  2. DAYBUE [Suspect]
     Active Substance: TROFINETIDE
     Dosage: 25 MILLILITER, BID VIA NG TUBE
  3. DAYBUE [Suspect]
     Active Substance: TROFINETIDE
     Dosage: 27 MILLILITER, BID VIA NG TUBE
  4. DAYBUE [Suspect]
     Active Substance: TROFINETIDE
     Dosage: 40 MILLILITER, BID VIA NG TUBE
  5. DAYBUE [Suspect]
     Active Substance: TROFINETIDE
     Dosage: 15 MILLILITER, BID VIA G-TUBE
  6. DAYBUE [Suspect]
     Active Substance: TROFINETIDE
     Dosage: 10 MILLILITER BID
  7. MIRALAX [Concomitant]
     Active Substance: POLYETHYLENE GLYCOL 3350
  8. KEPPRA [Concomitant]
     Active Substance: LEVETIRACETAM
  9. LAMICTAL [Concomitant]
     Active Substance: LAMOTRIGINE
  10. BACLOFEN [Concomitant]
     Active Substance: BACLOFEN
  11. GABAPENTIN [Concomitant]
     Active Substance: GABAPENTIN
  12. PREVACID [Concomitant]
     Active Substance: LANSOPRAZOLE
  13. FLONASE [Concomitant]
     Active Substance: FLUTICASONE PROPIONATE
  14. FLINTSTONES MULTIPLE VITAMINS [VITAMINS NOS] [Concomitant]
  15. ALBUTEROL SULFATE [Concomitant]
     Active Substance: ALBUTEROL SULFATE
  16. FLOVENT [Concomitant]
     Active Substance: FLUTICASONE PROPIONATE
  17. CLONAZEPAM [Concomitant]
     Active Substance: CLONAZEPAM
  18. CLONIDINE [Concomitant]
     Active Substance: CLONIDINE
  19. IMODIUM [Concomitant]
     Active Substance: LOPERAMIDE HYDROCHLORIDE
     Indication: Diarrhoea

REACTIONS (12)
  - Respiratory syncytial virus infection [Unknown]
  - Rhinovirus infection [Unknown]
  - Seizure [Not Recovered/Not Resolved]
  - Rash [Not Recovered/Not Resolved]
  - Incorrect route of product administration [Not Recovered/Not Resolved]
  - Underdose [Not Recovered/Not Resolved]
  - Diarrhoea [Not Recovered/Not Resolved]
  - Diarrhoea [Not Recovered/Not Resolved]
  - Diarrhoea [Not Recovered/Not Resolved]
  - Diarrhoea [Not Recovered/Not Resolved]
  - Diarrhoea [Recovered/Resolved]
  - Diarrhoea [Unknown]
